FAERS Safety Report 10671018 (Version 2)
Quarter: 2015Q1

REPORT INFORMATION
  Report Type: Spontaneous
  Country: DE (occurrence: None)
  Receive Date: 20141219
  Receipt Date: 20150121
  Transmission Date: 20150720
  Serious: Yes (Hospitalization)
  Sender: FDA-Public Use
  Company Number: DE2014GSK037968

PATIENT
  Sex: Male

DRUGS (4)
  1. DOLUTEGRAVIR (DOLUTEGRAVIR) UNKNOWN [Suspect]
     Active Substance: DOLUTEGRAVIR
     Indication: HIV INFECTION
     Dates: start: 20140327
  2. BISOHEXAL (BISOPROLOL FUMARATE) [Concomitant]
  3. LOSARTAN [Concomitant]
     Active Substance: LOSARTAN
  4. ABACAVIRSULPHATE+DOLUTEGRAVIR+LAMIVUDINE (ABACAVIR SULPHATE, DOLUTEGRAVIR, LAMIVUDINE) TABLET [Suspect]
     Active Substance: ABACAVIR SULFATE\DOLUTEGRAVIR SODIUM\LAMIVUDINE
     Dates: start: 20141013

REACTIONS (1)
  - Hyperparathyroidism [None]

NARRATIVE: CASE EVENT DATE: 20141028
